FAERS Safety Report 5315753-8 (Version None)
Quarter: 2007Q2

REPORT INFORMATION
  Report Type: 
  Country: None (occurrence: None)
  Receive Date: 20070503
  Receipt Date: 20070423
  Transmission Date: 20071010
  Serious: No
  Sender: FDA-Public Use
  Company Number: SE-BAXTER-2007BH003879

PATIENT
  Age: 30 Year
  Sex: Female

DRUGS (1)
  1. IMMUNE GLOBULIN INTRAVENOUS (HUMAN) [Suspect]
     Indication: MULTIPLE SCLEROSIS
     Dosage: DOSE UNIT:UNKNOWN
     Route: 065
     Dates: start: 20070401

REACTIONS (3)
  - CHILLS [None]
  - OXYGEN SATURATION DECREASED [None]
  - UNRESPONSIVE TO STIMULI [None]
